FAERS Safety Report 23065010 (Version 1)
Quarter: 2023Q4

REPORT INFORMATION
  Report Type: Spontaneous
  Country: US (occurrence: None)
  Receive Date: 20231013
  Receipt Date: 20231013
  Transmission Date: 20240110
  Serious: No
  Sender: FDA-Public Use
  Company Number: None

PATIENT
  Age: 41 Year
  Sex: Female

DRUGS (1)
  1. AMBRISENTAN [Suspect]
     Active Substance: AMBRISENTAN
     Indication: Pulmonary arterial hypertension
     Dosage: FREQUENCY : DAILY;?
     Route: 048
     Dates: start: 20200612

REACTIONS (6)
  - Pelvic pain [None]
  - Groin pain [None]
  - Abdominal pain lower [None]
  - Dysmenorrhoea [None]
  - Haemorrhagic cyst [None]
  - Dermoid cyst [None]

NARRATIVE: CASE EVENT DATE: 20231009
